FAERS Safety Report 7624413-X (Version None)
Quarter: 2011Q3

REPORT INFORMATION
  Report Type: 
  Country: None (occurrence: None)
  Receive Date: 20110720
  Receipt Date: 20110715
  Transmission Date: 20111222
  Serious: Yes (Other)
  Sender: FDA-Public Use
  Company Number: US-PFIZER INC-2011152925

PATIENT
  Sex: Female
  Weight: 53.1 kg

DRUGS (2)
  1. CHANTIX [Suspect]
     Dosage: 0.5 MG, 1X/DAY
     Dates: start: 20110701
  2. CHANTIX [Suspect]
     Indication: SMOKING CESSATION THERAPY
     Dosage: 1 MG, UNK

REACTIONS (8)
  - MALAISE [None]
  - CHRONIC OBSTRUCTIVE PULMONARY DISEASE [None]
  - HEADACHE [None]
  - DEPRESSED MOOD [None]
  - AGITATION [None]
  - VOMITING [None]
  - EMPHYSEMA [None]
  - NERVOUSNESS [None]
